FAERS Safety Report 17463563 (Version 3)
Quarter: 2020Q3

REPORT INFORMATION
  Report Type: Spontaneous
  Country: FR (occurrence: FR)
  Receive Date: 20200226
  Receipt Date: 20200716
  Transmission Date: 20201102
  Serious: Yes (Life-Threatening, Hospitalization)
  Sender: FDA-Public Use
  Company Number: FR-SA-2020SA049605

PATIENT

DRUGS (5)
  1. ALPROLIX [Suspect]
     Active Substance: EFTRENONACOG ALFA
     Indication: POST PROCEDURAL HAEMORRHAGE
     Dosage: 4000 IU, 1X (ON DEMAND)
     Route: 042
     Dates: start: 20200129, end: 20200129
  2. ALPROLIX [Suspect]
     Active Substance: EFTRENONACOG ALFA
     Indication: FACTOR IX DEFICIENCY
  3. ALPROLIX [Suspect]
     Active Substance: EFTRENONACOG ALFA
     Indication: FACTOR IX DEFICIENCY
  4. BENEFIX [Concomitant]
     Active Substance: COAGULATION FACTOR IX RECOMBINANT HUMAN\ISOPROPYL ALCOHOL
     Indication: TOOTH EXTRACTION
     Dosage: UNK UNK, PRN (FOR DENTAL EXTRACTION)
     Route: 065
  5. ALPROLIX [Suspect]
     Active Substance: EFTRENONACOG ALFA
     Indication: POST PROCEDURAL HAEMORRHAGE
     Dosage: 4000 IU, 1X (ON DEMAND)
     Route: 042
     Dates: start: 20200129, end: 20200129

REACTIONS (3)
  - Pain in extremity [Unknown]
  - Chest pain [Unknown]
  - Thrombophlebitis superficial [Not Recovered/Not Resolved]

NARRATIVE: CASE EVENT DATE: 202001
